FAERS Safety Report 9347051 (Version 1)
Quarter: 2013Q2

REPORT INFORMATION
  Report Type: Spontaneous
  Country: US (occurrence: US)
  Receive Date: 20130613
  Receipt Date: 20130613
  Transmission Date: 20140414
  Serious: Yes (Congenital Anomaly)
  Sender: FDA-Public Use
  Company Number: US-GLAXOSMITHKLINE-A1026972A

PATIENT
  Age: 0 Year
  Sex: Male

DRUGS (1)
  1. PAXIL [Suspect]
     Indication: DEPRESSION
     Route: 064

REACTIONS (4)
  - Patent ductus arteriosus [Unknown]
  - Foetal exposure during pregnancy [Unknown]
  - Arthropathy [Unknown]
  - Talipes [Unknown]
